FAERS Safety Report 14137797 (Version 2)
Quarter: 2017Q4

REPORT INFORMATION
  Report Type: Spontaneous
  Country: SE (occurrence: SE)
  Receive Date: 20171027
  Receipt Date: 20171027
  Transmission Date: 20180321
  Serious: Yes (Death, Other)
  Sender: FDA-Public Use
  Company Number: SE-CELGENEUS-SWE-20171005016

PATIENT

DRUGS (8)
  1. REVLIMID [Suspect]
     Active Substance: LENALIDOMIDE
     Dosage: DOSE REDUCED
     Route: 048
  2. IBRUTINIB [Suspect]
     Active Substance: IBRUTINIB
     Dosage: DOSE REDUCED
     Route: 065
  3. REVLIMID [Suspect]
     Active Substance: LENALIDOMIDE
     Indication: MANTLE CELL LYMPHOMA
     Dosage: 15 MILLIGRAM
     Route: 048
  4. RITUXIMAB. [Suspect]
     Active Substance: RITUXIMAB
     Indication: MANTLE CELL LYMPHOMA
     Dosage: 53.5714 MILLIGRAM/SQ. METER
     Route: 058
  5. REVLIMID [Suspect]
     Active Substance: LENALIDOMIDE
     Dosage: DOSE REDUCED
     Route: 048
  6. IBRUTINIB [Suspect]
     Active Substance: IBRUTINIB
     Dosage: DOSE REDUCED
     Route: 065
  7. IBRUTINIB [Suspect]
     Active Substance: IBRUTINIB
     Indication: MANTLE CELL LYMPHOMA
     Dosage: 560 MILLIGRAM
     Route: 048
  8. RITUXIMAB. [Suspect]
     Active Substance: RITUXIMAB
     Route: 058

REACTIONS (24)
  - Infection [Unknown]
  - Guillain-Barre syndrome [Unknown]
  - Diarrhoea [Unknown]
  - Mantle cell lymphoma [Fatal]
  - Muscle spasms [Unknown]
  - Neutropenia [Unknown]
  - Gastrointestinal disorder [Unknown]
  - Stomatitis [Unknown]
  - Ocular discomfort [Unknown]
  - Skin toxicity [Unknown]
  - Thrombocytopenia [Unknown]
  - Death [Fatal]
  - Embolic stroke [Fatal]
  - Neurological symptom [Unknown]
  - Anaemia [Unknown]
  - Renal disorder [Unknown]
  - Atrial fibrillation [Unknown]
  - Toxicity to various agents [Unknown]
  - Sepsis [Fatal]
  - Mental disorder [Unknown]
  - Fatigue [Unknown]
  - Respiratory symptom [Unknown]
  - Angiopathy [Unknown]
  - Dizziness [Unknown]
